FAERS Safety Report 6264172-9 (Version None)
Quarter: 2009Q3

REPORT INFORMATION
  Report Type: 
  Country: None (occurrence: None)
  Receive Date: 20090710
  Receipt Date: 20090630
  Transmission Date: 20100115
  Serious: Yes (Other)
  Sender: FDA-Public Use
  Company Number: US-PFIZER INC-2009220234

PATIENT
  Sex: Male
  Weight: 90.718 kg

DRUGS (13)
  1. CHANTIX [Suspect]
     Dosage: UNK
     Dates: start: 20090301
  2. LIPITOR [Suspect]
     Dosage: UNK
  3. ACETYLSALICYLIC ACID [Concomitant]
     Dosage: UNK
  4. ATENOLOL [Concomitant]
     Dosage: UNK
  5. AVANDIA [Concomitant]
     Indication: TYPE 2 DIABETES MELLITUS
     Dosage: UNK
  6. NIASPAN [Concomitant]
     Dosage: UNK
  7. FENOFIBRATE [Concomitant]
     Dosage: UNK
  8. PREVACID [Concomitant]
     Dosage: UNK
  9. LISINOPRIL AND HYDROCHLOROTHIAZIDE [Concomitant]
     Dosage: UNK
  10. DEPO-TESTOSTERONE [Concomitant]
     Dosage: UNK
  11. PLAVIX [Concomitant]
     Dosage: UNK
  12. VICODIN [Concomitant]
     Dosage: UNK
  13. HUMULIN 70/30 [Concomitant]
     Indication: TYPE 2 DIABETES MELLITUS
     Dosage: UNK

REACTIONS (2)
  - DIABETES MELLITUS INADEQUATE CONTROL [None]
  - HIGH DENSITY LIPOPROTEIN DECREASED [None]
